FAERS Safety Report 12207220 (Version 1)
Quarter: 2016Q1

REPORT INFORMATION
  Report Type: Spontaneous
  Country: US (occurrence: None)
  Receive Date: 20160323
  Receipt Date: 20160323
  Transmission Date: 20160526
  Serious: No
  Sender: FDA-Public Use
  Company Number: None

PATIENT
  Age: 61 Year
  Sex: Female

DRUGS (13)
  1. CALCIUM GLUCONATE. [Concomitant]
     Active Substance: CALCIUM GLUCONATE
  2. FLUTICASONE [Concomitant]
     Active Substance: FLUTICASONE\FLUTICASONE PROPIONATE
  3. ASPIRIN. [Concomitant]
     Active Substance: ASPIRIN
  4. DOCUSATE [Concomitant]
     Active Substance: DOCUSATE
  5. PREDNISONE. [Concomitant]
     Active Substance: PREDNISONE
  6. GABAPENTIN. [Concomitant]
     Active Substance: GABAPENTIN
  7. METOPROLOL. [Concomitant]
     Active Substance: METOPROLOL
  8. LANSOPRAZOLE. [Concomitant]
     Active Substance: LANSOPRAZOLE
  9. ACETAMINOPHEN. [Concomitant]
     Active Substance: ACETAMINOPHEN
  10. TACROLIMUS. [Concomitant]
     Active Substance: TACROLIMUS
  11. FOSCARNET [Suspect]
     Active Substance: FOSCARNET
     Indication: INFECTION
     Route: 042
     Dates: start: 20160218
  12. RANITIDINE [Concomitant]
     Active Substance: RANITIDINE\RANITIDINE HYDROCHLORIDE
  13. SULFAMETHOXAZOLE/TRIAMETHOPRIM [Concomitant]

REACTIONS (1)
  - Blood creatine increased [None]

NARRATIVE: CASE EVENT DATE: 20160223
